FAERS Safety Report 13780480 (Version 1)
Quarter: 2017Q3

REPORT INFORMATION
  Report Type: Spontaneous
  Country: GB (occurrence: GB)
  Receive Date: 20170724
  Receipt Date: 20170724
  Transmission Date: 20171127
  Serious: Yes (Other)
  Sender: FDA-Public Use
  Company Number: GB-TORRENT-00015445

PATIENT
  Sex: Female

DRUGS (2)
  1. ARIPIPRAZOLE. [Suspect]
     Active Substance: ARIPIPRAZOLE
  2. CLOZAPINE. [Suspect]
     Active Substance: CLOZAPINE

REACTIONS (1)
  - Therapeutic response decreased [Unknown]
